FAERS Safety Report 25153477 (Version 1)
Quarter: 2025Q2

REPORT INFORMATION
  Report Type: Spontaneous
  Country: CN (occurrence: CN)
  Receive Date: 20250403
  Receipt Date: 20250403
  Transmission Date: 20250716
  Serious: Yes (Death, Hospitalization, Other)
  Sender: NOVITIUM PHARMA
  Company Number: CN-NOVITIUMPHARMA-2025CNNVP00796

PATIENT
  Age: 19 Year
  Sex: Male

DRUGS (10)
  1. DEXAMETHASONE [Suspect]
     Active Substance: DEXAMETHASONE
     Indication: T-cell type acute leukaemia
  2. DEXAMETHASONE [Suspect]
     Active Substance: DEXAMETHASONE
     Route: 037
  3. PEGASPARGASE [Concomitant]
     Active Substance: PEGASPARGASE
  4. CYCLOPHOSPHAMIDE [Concomitant]
     Active Substance: CYCLOPHOSPHAMIDE
  5. IDARUBICIN [Concomitant]
     Active Substance: IDARUBICIN
  6. VINDESINE [Concomitant]
     Active Substance: VINDESINE
  7. METHOTREXATE [Concomitant]
     Active Substance: METHOTREXATE
     Route: 037
  8. CYTARABINE [Concomitant]
     Active Substance: CYTARABINE
     Route: 037
  9. SODIUM CHLORIDE [Concomitant]
     Active Substance: SODIUM CHLORIDE
  10. MERCAPTOPURINE [Concomitant]
     Active Substance: MERCAPTOPURINE

REACTIONS (4)
  - Drug ineffective [Fatal]
  - Myelosuppression [Unknown]
  - Marrow hyperplasia [Unknown]
  - Infection [Unknown]
